FAERS Safety Report 10301953 (Version 8)
Quarter: 2017Q1

REPORT INFORMATION
  Report Type: Report from Study
  Country: CH (occurrence: CA)
  Receive Date: 20140714
  Receipt Date: 20170316
  Transmission Date: 20170428
  Serious: Yes (Death, Life-Threatening, Hospitalization, Other)
  Sender: FDA-Public Use
  Company Number: CA-TEVA-494012USA

PATIENT
  Age: 77 Year
  Sex: Male

DRUGS (31)
  1. OBINUTUZUMAB [Suspect]
     Active Substance: OBINUTUZUMAB
     Dosage: 975 MG, CYCLIC (C1D2, 1 IN 1 TOTAL)
     Route: 042
     Dates: start: 20140604, end: 20140604
  2. NORMAL SALINE [Suspect]
     Active Substance: SODIUM CHLORIDE
     Indication: TUMOUR LYSIS SYNDROME
     Route: 042
     Dates: start: 20140605, end: 20140605
  3. SYMBICORT [Concomitant]
     Active Substance: BUDESONIDE\FORMOTEROL FUMARATE DIHYDRATE
     Indication: PRODUCT USED FOR UNKNOWN INDICATION
     Dosage: 4 PUFFS, THRICE DAILY
     Route: 045
     Dates: start: 2012
  4. XARELTO [Concomitant]
     Active Substance: RIVAROXABAN
     Dosage: UNK, UNKNOWN FREQ.
     Route: 065
     Dates: start: 2004
  5. ZOPICLONE [Concomitant]
     Active Substance: ZOPICLONE
     Route: 065
     Dates: start: 20140526
  6. ALPRAZOLAM. [Concomitant]
     Active Substance: ALPRAZOLAM
     Indication: PRODUCT USED FOR UNKNOWN INDICATION
     Dosage: 0.25 MG, ONCE DAILY
     Route: 048
     Dates: start: 2010
  7. BENADRYL [Concomitant]
     Active Substance: DIPHENHYDRAMINE HYDROCHLORIDE
     Indication: PROPHYLAXIS
     Dosage: 50MG PRE GA101
     Route: 042
     Dates: start: 20140603, end: 20140617
  8. TYLENOL [Concomitant]
     Active Substance: ACETAMINOPHEN
     Dosage: 1000 MG, 1 IN 1 AS REQUIRED.
     Route: 048
     Dates: start: 1994
  9. MONTELUCAST [Concomitant]
     Active Substance: MONTELUKAST SODIUM
     Indication: PROPHYLAXIS
     Route: 048
     Dates: start: 20140531, end: 20140602
  10. IMODIUM [Concomitant]
     Active Substance: LOPERAMIDE HYDROCHLORIDE
     Indication: PRODUCT USED FOR UNKNOWN INDICATION
     Dosage: 2 PILLS, AS NEEDED
     Route: 048
     Dates: start: 1994
  11. ALPRAZOLAM. [Concomitant]
     Active Substance: ALPRAZOLAM
     Dosage: 0.25 MG, UNKNOWN FREQ.
     Route: 065
     Dates: start: 20140526
  12. LANSOPRAZOLE. [Concomitant]
     Active Substance: LANSOPRAZOLE
     Indication: PRODUCT USED FOR UNKNOWN INDICATION
     Route: 048
     Dates: start: 2004
  13. TYLENOL [Concomitant]
     Active Substance: ACETAMINOPHEN
     Indication: PROPHYLAXIS
     Dosage: 650MG 30 MINS PRE GA101
     Route: 048
     Dates: start: 20140603, end: 20140617
  14. OBINUTUZUMAB [Suspect]
     Active Substance: OBINUTUZUMAB
     Dosage: 1000 MG, CYCLIC (C1D15, 1 IN 1 TOTAL)
     Route: 042
     Dates: start: 20140617, end: 20140623
  15. BENDAMUSTINE HYDROCHLORIDE. [Suspect]
     Active Substance: BENDAMUSTINE HYDROCHLORIDE
     Dosage: 70 MG/M2, CYCLIC (C1D2, 1 IN 1 TOTAL)
     Route: 042
     Dates: start: 20140604, end: 20140623
  16. ZOPICLONE [Concomitant]
     Active Substance: ZOPICLONE
     Indication: PRODUCT USED FOR UNKNOWN INDICATION
     Route: 048
     Dates: start: 2010
  17. ZOFRAN [Concomitant]
     Active Substance: ONDANSETRON HYDROCHLORIDE
     Indication: PRODUCT USED FOR UNKNOWN INDICATION
     Dosage: 30 MINS PRE BENDA THEN Q12H X 4 DOSES
     Route: 048
     Dates: start: 20140603, end: 20140604
  18. ACYCLOVIR                          /00587301/ [Concomitant]
     Active Substance: ACYCLOVIR
     Indication: PROPHYLAXIS
     Route: 048
     Dates: start: 20140603
  19. ALLOPURINOL. [Concomitant]
     Active Substance: ALLOPURINOL
     Indication: PROPHYLAXIS
     Dosage: DAILY; HOLD ON BENDAMUSTINE (300 MG)
     Route: 048
     Dates: start: 20140601, end: 20140607
  20. OBINUTUZUMAB [Suspect]
     Active Substance: OBINUTUZUMAB
     Dosage: 1000 MG, CYCLIC (C1D8, 1 IN 1 TOTAL)
     Route: 042
     Dates: start: 20140610, end: 20140610
  21. NORMAL SALINE [Suspect]
     Active Substance: SODIUM CHLORIDE
     Indication: PROPHYLAXIS
     Dosage: 125 ML/HR, UNKNOWN FREQ.
     Route: 042
     Dates: start: 20140602, end: 20140603
  22. ZOPICLONE [Concomitant]
     Active Substance: ZOPICLONE
     Route: 048
     Dates: start: 20140621, end: 20140621
  23. LANSOPRAZOLE. [Concomitant]
     Active Substance: LANSOPRAZOLE
     Dosage: 30 MG, ONCE A DAY
     Route: 048
     Dates: start: 20140526
  24. SEPTRA [Concomitant]
     Active Substance: SULFAMETHOXAZOLE\TRIMETHOPRIM
     Indication: PRODUCT USED FOR UNKNOWN INDICATION
     Dosage: 2 TABS Q MON, WED, FRI (2 IN 1 DAY)
     Route: 048
     Dates: start: 20140603
  25. REACTINE                           /00884302/ [Concomitant]
     Active Substance: CETIRIZINE HYDROCHLORIDE
     Indication: PROPHYLAXIS
     Route: 048
     Dates: start: 20140531, end: 20140603
  26. BENDAMUSTINE HYDROCHLORIDE. [Suspect]
     Active Substance: BENDAMUSTINE HYDROCHLORIDE
     Indication: CHRONIC LYMPHOCYTIC LEUKAEMIA
     Dosage: 70 MG/M2, CYCLIC (C1D1, 1 IN 1 TOTAL)
     Route: 042
     Dates: start: 20140603, end: 20140603
  27. OBINUTUZUMAB [Suspect]
     Active Substance: OBINUTUZUMAB
     Indication: CHRONIC LYMPHOCYTIC LEUKAEMIA
     Dosage: 25 MG, CYCLIC (C1D1, 1 IN 1 TOTAL)
     Route: 042
     Dates: start: 20140603, end: 20140603
  28. SYMBICORT [Concomitant]
     Active Substance: BUDESONIDE\FORMOTEROL FUMARATE DIHYDRATE
     Dosage: 4 PUFFS, UNKNOWN FREQ.
     Route: 045
     Dates: start: 20140526
  29. XARELTO [Concomitant]
     Active Substance: RIVAROXABAN
     Indication: PRODUCT USED FOR UNKNOWN INDICATION
     Dosage: DAILY IF PLATELETS ABOVE 100 (20 MG)
     Route: 048
     Dates: start: 20130412, end: 20140606
  30. RANITIDINE. [Concomitant]
     Active Substance: RANITIDINE
     Indication: PROPHYLAXIS
     Route: 048
     Dates: start: 20140531, end: 20140603
  31. DEXAMETHASONE. [Concomitant]
     Active Substance: DEXAMETHASONE
     Indication: PROPHYLAXIS
     Dosage: 20 MG, 1 HOUR PRE GA101
     Route: 042
     Dates: start: 20140603, end: 20140604

REACTIONS (3)
  - Pleural effusion [Not Recovered/Not Resolved]
  - Arrhythmia [Fatal]
  - Tumour lysis syndrome [Recovered/Resolved]

NARRATIVE: CASE EVENT DATE: 20140605
